FAERS Safety Report 21756081 (Version 2)
Quarter: 2022Q4

REPORT INFORMATION
  Report Type: Spontaneous
  Country: GB (occurrence: GB)
  Receive Date: 20221220
  Receipt Date: 20221227
  Transmission Date: 20230113
  Serious: Yes (Other)
  Sender: FDA-Public Use
  Company Number: GB-009507513-2212GBR005364

PATIENT
  Age: 69 Year
  Sex: Male

DRUGS (1)
  1. KEYTRUDA [Suspect]
     Active Substance: PEMBROLIZUMAB
     Indication: Squamous cell carcinoma of head and neck
     Dosage: 400 MILLIGRAM, EVERY 6 WEEKS

REACTIONS (4)
  - Pneumonitis [Unknown]
  - Recurrent cancer [Unknown]
  - Therapy partial responder [Unknown]
  - Positron emission tomogram abnormal [Unknown]
